FAERS Safety Report 8696407 (Version 3)
Quarter: 2012Q4

REPORT INFORMATION
  Report Type: 
  Country: JP (occurrence: JP)
  Receive Date: 20120801
  Receipt Date: 20120828
  Transmission Date: 20130627
  Serious: Yes (Other)
  Sender: FDA-Public Use
  Company Number: PHHY2012JP062673

PATIENT
  Age: 79 Year
  Sex: Male

DRUGS (4)
  1. EXELON PATCH [Suspect]
     Indication: HYPOKINESIA
     Dosage: 4.5 mg, Daily
     Route: 062
     Dates: start: 20120715, end: 20120718
  2. MEMARY [Concomitant]
     Indication: HYPOKINESIA
     Dosage: 20 mg, UNK
     Route: 048
     Dates: start: 20110105, end: 20120730
  3. MICAMLO [Concomitant]
     Dosage: UNK UKN, UNK
     Route: 048
     Dates: start: 20120105, end: 20120730
  4. MIGLITOL [Concomitant]
     Dosage: 150 mg, UNK
     Route: 048
     Dates: start: 20120105, end: 20120730

REACTIONS (21)
  - Dysphagia [Recovering/Resolving]
  - Oedema peripheral [Recovering/Resolving]
  - Feeling hot [Recovering/Resolving]
  - Blood pressure fluctuation [Unknown]
  - Pallor [Recovered/Resolved]
  - Incontinence [Recovered/Resolved]
  - Pyrexia [Recovered/Resolved]
  - Muscular weakness [Recovered/Resolved]
  - Dysstasia [Recovered/Resolved]
  - Feeling abnormal [Recovered/Resolved]
  - Faeces discoloured [Recovered/Resolved]
  - Somnolence [Recovered/Resolved]
  - Balance disorder [Recovered/Resolved]
  - Diarrhoea [Recovered/Resolved]
  - Feeling cold [Recovered/Resolved]
  - Snoring [Unknown]
  - Chromaturia [Unknown]
  - Eyelid ptosis [Unknown]
  - Heart rate increased [Recovered/Resolved]
  - Fatigue [Recovered/Resolved]
  - Diet refusal [None]
